FAERS Safety Report 4703684-3 (Version None)
Quarter: 2005Q2

REPORT INFORMATION
  Report Type: 
  Country: None (occurrence: None)
  Receive Date: 20050628
  Receipt Date: 20050615
  Transmission Date: 20051028
  Serious: Yes (Other)
  Sender: FDA-Public Use
  Company Number: US_0506118485

PATIENT
  Age: 49 Year
  Sex: Female

DRUGS (53)
  1. ZYPREXA [Suspect]
     Indication: ANXIETY
     Dates: start: 20020101
  2. CLONAZEPAM [Concomitant]
  3. DURAGESIC (FENTANYL ) [Concomitant]
  4. WELLBUTRIN [Concomitant]
  5. KLOR-CON [Concomitant]
  6. NOVOLOG [Concomitant]
  7. FUROSEMIDE [Concomitant]
  8. METOLAZONE [Concomitant]
  9. HUMALOG [Concomitant]
  10. MIRAPEX [Concomitant]
  11. FLUDROCORTISONE [Concomitant]
  12. LANTUS [Concomitant]
  13. GEMFIBROZIL [Concomitant]
  14. AMBIEN [Concomitant]
  15. AVELOX [Concomitant]
  16. SYNTHROID [Concomitant]
  17. COZAAR [Concomitant]
  18. ZITHROMAX [Concomitant]
  19. ENALAPRIL MALEATE [Concomitant]
  20. CORTEF (HYDROCORTISONE CIPIONATE) [Concomitant]
  21. PREDNISONE [Concomitant]
  22. EFFEXOR [Concomitant]
  23. NASONEX [Concomitant]
  24. NEXIUM [Concomitant]
  25. TOPAMAX [Concomitant]
  26. HUMULIN R [Concomitant]
  27. GLUCOVANCE [Concomitant]
  28. VICODIN [Concomitant]
  29. DDAVP (DESMOPRESSIN ACETATE) [Concomitant]
  30. OXYCONTIN [Concomitant]
  31. ACETAMINOPHEN W/ PROPOXYPHENE HCL [Concomitant]
  32. MECLIZINE [Concomitant]
  33. NITROBID (NITROFURANTOIN) [Concomitant]
  34. CUPRIMINE [Concomitant]
  35. DIPROLENE (BETAMETHASONE DIPROPIONATE) [Concomitant]
  36. CILOXAN (CIPROFLOXACIN HYDROCHLORIDE) [Concomitant]
  37. LEVOXYL [Concomitant]
  38. TEQUIN [Concomitant]
  39. ELIDEL [Concomitant]
  40. ASTELIN (AZELASTIEN HYDROCHLORIDE) [Concomitant]
  41. EFFERSOL [Concomitant]
  42. TMP (TRIMETHOPRIM) [Concomitant]
  43. PROMETHAZINE [Concomitant]
  44. DOXYCYCLINE [Concomitant]
  45. MEBENDAZOLE [Concomitant]
  46. PRILOSEC [Concomitant]
  47. HYDROXYZINE HCL [Concomitant]
  48. TRIAMCINOLONE [Concomitant]
  49. NORTRIPTYLINE HCL [Concomitant]
  50. LOTREL [Concomitant]
  51. OXYCODONE HCL [Concomitant]
  52. TEMAZEPAM [Concomitant]
  53. HYDROCHLOROTHIAZIDE [Concomitant]

REACTIONS (5)
  - DIABETES INSIPIDUS [None]
  - DIABETES MELLITUS [None]
  - HYPERTRIGLYCERIDAEMIA [None]
  - HYPOGLYCAEMIA [None]
  - INAPPROPRIATE ANTIDIURETIC HORMONE SECRETION [None]
